FAERS Safety Report 11690001 (Version 1)
Quarter: 2015Q4

REPORT INFORMATION
  Report Type: Spontaneous
  Country: US (occurrence: None)
  Receive Date: 20151030
  Receipt Date: 20151030
  Transmission Date: 20160304
  Serious: Yes (Other)
  Sender: FDA-Public Use
  Company Number: None

PATIENT
  Age: 60 Year
  Sex: Female
  Weight: 39.46 kg

DRUGS (14)
  1. EFFEXOR [Concomitant]
     Active Substance: VENLAFAXINE HYDROCHLORIDE
  2. SYNLIN [Concomitant]
  3. LOW DOSE ASPIRIN [Concomitant]
     Active Substance: ASPIRIN
  4. RECLAST [Suspect]
     Active Substance: ZOLEDRONIC ACID
     Indication: OSTEOPOROSIS
     Dates: start: 20151021, end: 20151021
  5. ALBUTEROL. [Concomitant]
     Active Substance: ALBUTEROL
  6. IMPLANTED NEURO-STIMULATOR [Concomitant]
  7. INSULIN [Concomitant]
     Active Substance: INSULIN NOS
  8. NEURONTIN [Concomitant]
     Active Substance: GABAPENTIN
  9. WELLBUTRIN [Concomitant]
     Active Substance: BUPROPION HYDROCHLORIDE
  10. OMNIPOD INSULIN PUMP [Concomitant]
     Active Substance: DEVICE
  11. SYNTHROID [Concomitant]
     Active Substance: LEVOTHYROXINE SODIUM
  12. COLACE [Concomitant]
     Active Substance: DOCUSATE SODIUM
  13. DULERA [Concomitant]
     Active Substance: FORMOTEROL FUMARATE DIHYDRATE\MOMETASONE FUROATE
  14. IPROTOMIDE [Concomitant]

REACTIONS (8)
  - Headache [None]
  - Mobility decreased [None]
  - Groin pain [None]
  - Pain in extremity [None]
  - Back pain [None]
  - Constipation [None]
  - Nausea [None]
  - Neck pain [None]

NARRATIVE: CASE EVENT DATE: 20151021
